FAERS Safety Report 4325269-3 (Version None)
Quarter: 2004Q1

REPORT INFORMATION
  Report Type: 
  Country: None (occurrence: None)
  Receive Date: 20040324
  Receipt Date: 20040309
  Transmission Date: 20041129
  Serious: Yes (Hospitalization)
  Sender: FDA-Public Use
  Company Number: EWC040237994

PATIENT
  Age: 42 Year

DRUGS (3)
  1. GEMCITABINE HYDROCHLORIDE [Suspect]
     Indication: PANCREATIC CARCINOMA
     Dosage: 1.2 MG/M2/2 OTHER
     Route: 042
     Dates: start: 20040203
  2. CISPLATIN [Concomitant]
     Route: 042
  3. FLUOROURACIL [Concomitant]

REACTIONS (4)
  - NAUSEA [None]
  - PAIN [None]
  - PANCREATITIS ACUTE [None]
  - VOMITING [None]
